FAERS Safety Report 16364066 (Version 4)
Quarter: 2019Q3

REPORT INFORMATION
  Report Type: Report from Study
  Country: US (occurrence: US)
  Receive Date: 20190528
  Receipt Date: 20190801
  Transmission Date: 20191004
  Serious: Yes (Hospitalization, Other)
  Sender: FDA-Public Use
  Company Number: US-PFIZER INC-2019222562

PATIENT
  Age: 73 Year
  Sex: Female

DRUGS (3)
  1. IBRANCE [Suspect]
     Active Substance: PALBOCICLIB
     Dosage: 75 MG, CYCLIC (75MG DAILY FOR 21 DAYS OF 28 DAY CYCLE )
     Route: 048
     Dates: start: 20190628, end: 201907
  2. IBRANCE [Suspect]
     Active Substance: PALBOCICLIB
     Indication: BREAST CANCER
     Dosage: UNK
     Route: 048
     Dates: end: 20181130
  3. IBRANCE [Suspect]
     Active Substance: PALBOCICLIB
     Dosage: 75 MG, CYCLIC, (DAILY FOR 21 DAYS OF 28 DAY)
     Route: 048
     Dates: start: 20190421, end: 20190619

REACTIONS (6)
  - Leukopenia [Recovered/Resolved]
  - Neoplasm progression [Unknown]
  - Cardiac disorder [Unknown]
  - Anaemia [Recovered/Resolved]
  - Pulmonary embolism [Unknown]
  - Pruritus [Unknown]

NARRATIVE: CASE EVENT DATE: 2019
